FAERS Safety Report 9498995 (Version 1)
Quarter: 2013Q3

REPORT INFORMATION
  Report Type: Report from Study
  Country: US (occurrence: US)
  Receive Date: 20130904
  Receipt Date: 20130904
  Transmission Date: 20140515
  Serious: Yes (Other)
  Sender: FDA-Public Use
  Company Number: US-ROCHE-1267377

PATIENT
  Age: 58 Year
  Sex: Female
  Weight: 92.62 kg

DRUGS (43)
  1. HERCEPTIN [Suspect]
     Indication: BREAST CANCER
     Route: 065
     Dates: start: 20091203, end: 20100323
  2. HERCEPTIN [Suspect]
     Route: 065
     Dates: end: 20101111
  3. HERCEPTIN [Suspect]
     Route: 065
     Dates: start: 20101230, end: 20111112
  4. HERCEPTIN [Suspect]
     Route: 065
     Dates: end: 201204
  5. HERCEPTIN [Suspect]
     Route: 065
     Dates: start: 20120419, end: 20120917
  6. VALTREX [Concomitant]
     Route: 065
     Dates: start: 20120517
  7. CARBOPLATIN [Concomitant]
     Route: 065
     Dates: start: 20091203, end: 20100323
  8. TAXOTERE [Concomitant]
     Route: 065
     Dates: start: 20091203, end: 20100323
  9. FEMARA [Concomitant]
     Route: 065
     Dates: end: 20101111
  10. FEMARA [Concomitant]
     Route: 065
     Dates: start: 20110509
  11. FEMARA [Concomitant]
     Route: 065
     Dates: start: 20110623
  12. FEMARA [Concomitant]
     Route: 065
     Dates: start: 20110509
  13. GEMZAR [Concomitant]
     Route: 065
     Dates: start: 20101230, end: 20111211
  14. TYKERB [Concomitant]
     Route: 065
     Dates: end: 201204
  15. NAVELBINE [Concomitant]
     Route: 065
     Dates: start: 20120419
  16. GLIMEPIRIDE [Concomitant]
     Dosage: 1 MG PO DAILY
     Route: 048
     Dates: start: 20110623
  17. ABRAXANE [Concomitant]
     Route: 065
     Dates: start: 20121220
  18. SINGULAIR [Concomitant]
     Dosage: 250-50MCG/D INHALE DAILY
     Route: 065
     Dates: start: 20110623
  19. GLUCOPHAGE [Concomitant]
     Route: 048
     Dates: start: 20110623
  20. LIPITOR [Concomitant]
     Route: 048
  21. LIPITOR [Concomitant]
     Route: 048
     Dates: start: 20110428
  22. ALBUTEROL SULFATE [Concomitant]
     Dosage: 90MCG/A 4 PUFF DAILY
     Route: 065
     Dates: start: 20110623
  23. BONIVA [Concomitant]
     Route: 048
     Dates: start: 20110623
  24. RAMIPRIL [Concomitant]
     Route: 048
     Dates: start: 20110623
  25. IXABEPILONE [Concomitant]
     Route: 065
     Dates: start: 20120927, end: 201212
  26. ADVAIR DISKUS [Concomitant]
     Dosage: INHALE
     Route: 065
     Dates: start: 20110623
  27. PERCOCET [Concomitant]
     Route: 065
     Dates: start: 20110623
  28. KLOR-CON [Concomitant]
     Route: 065
     Dates: start: 20120213
  29. KLOR-CON [Concomitant]
     Route: 065
     Dates: start: 20121213
  30. KLOR-CON [Concomitant]
     Route: 065
     Dates: start: 20121212
  31. FLONASE [Concomitant]
     Dosage: SQUIRT APPLY AS DIRECTED
     Route: 065
     Dates: start: 20120823
  32. FENTANYL [Concomitant]
     Dosage: PATCH APPLY EVERY 72HRS
     Route: 065
     Dates: start: 20121010
  33. AMOXICILLIN [Concomitant]
     Dosage: BY MOUTH
     Route: 065
     Dates: start: 20121022
  34. DIFLUCAN [Concomitant]
     Dosage: AS DIRECTED
     Route: 065
     Dates: start: 20121115
  35. COMPAZINE [Concomitant]
     Route: 065
     Dates: start: 20121129
  36. COMPAZINE [Concomitant]
     Route: 065
     Dates: start: 20120126
  37. COMPAZINE [Concomitant]
     Route: 065
     Dates: start: 20120216
  38. GABAPENTIN [Concomitant]
     Route: 065
     Dates: start: 20130103
  39. AVELOX [Concomitant]
     Route: 065
     Dates: start: 20130117
  40. LAPATINIB [Concomitant]
     Dosage: BY MOUTH IN MORNING
     Route: 065
     Dates: start: 20120126
  41. DURAGESIC [Concomitant]
     Dosage: PATCH TO APPLY
     Route: 065
     Dates: start: 20120119
  42. OXYCONTIN [Concomitant]
     Route: 048
     Dates: start: 20120614
  43. XELODA [Concomitant]
     Route: 065

REACTIONS (12)
  - Disease progression [Unknown]
  - Neuropathy peripheral [Unknown]
  - Local swelling [Unknown]
  - Rash [Unknown]
  - Hypertension [Unknown]
  - Anaemia [Unknown]
  - Osteopenia [Unknown]
  - Arthritis [Unknown]
  - Pleural effusion [Unknown]
  - Pain in extremity [Unknown]
  - Musculoskeletal chest pain [Unknown]
  - Musculoskeletal pain [Unknown]
